FAERS Safety Report 10408583 (Version 1)
Quarter: 2014Q3

REPORT INFORMATION
  Report Type: Other
  Country: IN (occurrence: IN)
  Receive Date: 20140826
  Receipt Date: 20140826
  Transmission Date: 20150326
  Serious: Yes (Life-Threatening, Hospitalization)
  Sender: FDA-Public Use
  Company Number: IN-LUPIN PHARMACEUTICALS INC.-2014-01444

PATIENT
  Age: 17 Year
  Sex: Female

DRUGS (1)
  1. RAMIPRIL. [Suspect]
     Active Substance: RAMIPRIL
     Indication: SUICIDE ATTEMPT
     Route: 065

REACTIONS (8)
  - Toxicity to various agents [Recovering/Resolving]
  - Suicide attempt [None]
  - Cardiogenic shock [Recovering/Resolving]
  - Lactic acidosis [None]
  - Renal failure acute [None]
  - Hepatic function abnormal [None]
  - Metabolic acidosis [None]
  - Intentional overdose [Unknown]
